FAERS Safety Report 8540642-5 (Version None)
Quarter: 2012Q3

REPORT INFORMATION
  Report Type: 
  Country: None (occurrence: None)
  Receive Date: 20120726
  Receipt Date: 20120719
  Transmission Date: 20120928
  Serious: Yes (Death, Hospitalization)
  Sender: FDA-Public Use
  Company Number: US-BRISTOL-MYERS SQUIBB COMPANY-16705964

PATIENT
  Age: 49 Year
  Sex: Female

DRUGS (2)
  1. YERVOY [Suspect]
     Indication: LUNG NEOPLASM
     Dosage: WEEK 1,4,7,10. 244MG(3MG/KG).  DOSE RECEIVED 1, 14MAY2012 INTERRUPTED ON 4JUN2012
     Route: 042
     Dates: start: 20120514, end: 20120514
  2. YERVOY [Suspect]
     Indication: MALIGNANT MELANOMA
     Dosage: WEEK 1,4,7,10. 244MG(3MG/KG).  DOSE RECEIVED 1, 14MAY2012 INTERRUPTED ON 4JUN2012
     Route: 042
     Dates: start: 20120514, end: 20120514

REACTIONS (1)
  - NEOPLASM MALIGNANT [None]
